FAERS Safety Report 24240956 (Version 2)
Quarter: 2024Q3

REPORT INFORMATION
  Report Type: Spontaneous
  Country: JP (occurrence: JP)
  Receive Date: 20240823
  Receipt Date: 20240916
  Transmission Date: 20241016
  Serious: Yes (Hospitalization)
  Sender: EMD SERONO INC
  Company Number: JP-Merck Healthcare KGaA-2024043878

PATIENT
  Age: 9 Decade
  Sex: Female

DRUGS (1)
  1. METGLUCO [Suspect]
     Active Substance: METFORMIN HYDROCHLORIDE
     Indication: Type 2 diabetes mellitus
     Dosage: UNKNOWN
     Route: 048

REACTIONS (5)
  - Lactic acidosis [Recovered/Resolved]
  - Physical deconditioning [Unknown]
  - Dehydration [Unknown]
  - Acute kidney injury [Unknown]
  - Coagulopathy [Unknown]

NARRATIVE: CASE EVENT DATE: 20230101
